FAERS Safety Report 6549738-0 (Version None)
Quarter: 2010Q1

REPORT INFORMATION
  Report Type: 
  Country: None (occurrence: None)
  Receive Date: 20100125
  Receipt Date: 20100118
  Transmission Date: 20100710
  Serious: Yes (Hospitalization)
  Sender: FDA-Public Use
  Company Number: IT-BAYER-201012395GPV

PATIENT
  Age: 68 Year
  Sex: Male

DRUGS (1)
  1. NEXAVAR [Suspect]
     Indication: HEPATIC NEOPLASM MALIGNANT
     Route: 048
     Dates: start: 20090915, end: 20100108

REACTIONS (1)
  - EPILEPSY [None]
